FAERS Safety Report 7042837-9 (Version None)
Quarter: 2010Q4

REPORT INFORMATION
  Report Type: 
  Country: None (occurrence: None)
  Receive Date: 20101013
  Receipt Date: 20100929
  Transmission Date: 20110411
  Serious: Yes (Hospitalization)
  Sender: FDA-Public Use
  Company Number: JP-EISAI INC.-E3810-04100-SPO-JP

PATIENT
  Age: 47 Year
  Sex: Male

DRUGS (3)
  1. PARIET (RABEPRAZOLE) [Suspect]
     Route: 048
     Dates: start: 20080201, end: 20080201
  2. AMOXICILLIN TRIHYDRATE [Suspect]
     Route: 048
     Dates: start: 20080201, end: 20080201
  3. KLARICID [Suspect]
     Route: 048
     Dates: start: 20080201, end: 20080201

REACTIONS (1)
  - LIVER DISORDER [None]
